FAERS Safety Report 11825381 (Version 1)
Quarter: 2015Q4

REPORT INFORMATION
  Report Type: Spontaneous
  Country: US (occurrence: US)
  Receive Date: 20151211
  Receipt Date: 20151211
  Transmission Date: 20160305
  Serious: No
  Sender: FDA-Public Use
  Company Number: US-AMGEN-USASP2015130854

PATIENT
  Age: 81 Year
  Sex: Female

DRUGS (14)
  1. GLUCOSAMINE [Concomitant]
     Active Substance: GLUCOSAMINE
     Dosage: UNK
  2. RESTASIS [Concomitant]
     Active Substance: CYCLOSPORINE
     Dosage: UNK
  3. PRAVASTATIN [Concomitant]
     Active Substance: PRAVASTATIN\PRAVASTATIN SODIUM
  4. ENBREL [Suspect]
     Active Substance: ETANERCEPT
     Indication: PSORIATIC ARTHROPATHY
     Dosage: 50 MG, QWK
     Route: 058
     Dates: start: 2012, end: 20151118
  5. VITAMIN D                          /00107901/ [Concomitant]
     Active Substance: ERGOCALCIFEROL
  6. ESTRACE [Concomitant]
     Active Substance: ESTRADIOL
  7. ESTRADIOL. [Concomitant]
     Active Substance: ESTRADIOL
  8. THEREMS                            /00109901/ [Concomitant]
     Dosage: UNK
  9. METOPROLOL [Concomitant]
     Active Substance: METOPROLOL
  10. VITAMIN C [Concomitant]
     Active Substance: ASCORBIC ACID
  11. FOLBEE [Concomitant]
     Dosage: UNK
  12. PRESERVISION AREDS [Concomitant]
     Active Substance: MINERALS\VITAMINS
  13. ASPIRIN                            /00002701/ [Concomitant]
     Active Substance: ASPIRIN
     Dosage: UNK
  14. DYAZIDE [Concomitant]
     Active Substance: HYDROCHLOROTHIAZIDE\TRIAMTERENE

REACTIONS (2)
  - Hypoaesthesia [Unknown]
  - Paraesthesia [Unknown]

NARRATIVE: CASE EVENT DATE: 201511
